FAERS Safety Report 17531488 (Version 2)
Quarter: 2020Q2

REPORT INFORMATION
  Report Type: Spontaneous
  Country: JP (occurrence: JP)
  Receive Date: 20200312
  Receipt Date: 20200424
  Transmission Date: 20200713
  Serious: Yes (Hospitalization, Other)
  Sender: FDA-Public Use
  Company Number: JP-GLAXOSMITHKLINE-JP2019JPN228735

PATIENT
  Age: 22 Year
  Sex: Female
  Weight: 50 kg

DRUGS (2)
  1. LAMICTAL [Suspect]
     Active Substance: LAMOTRIGINE
     Indication: EPILEPSY
     Dosage: 25 MG, QD AFTER BREAKFAST
     Route: 048
     Dates: start: 20190212, end: 20190226
  2. LAMICTAL [Suspect]
     Active Substance: LAMOTRIGINE
     Dosage: 50 MG, QD AFTER BREAKFAST
     Route: 048
     Dates: start: 20190227, end: 20190301

REACTIONS (10)
  - Stevens-Johnson syndrome [Recovered/Resolved]
  - Oral mucosal scab [Recovered/Resolved]
  - Lip ulceration [Recovered/Resolved]
  - Lip scab [Recovered/Resolved]
  - Lip swelling [Recovered/Resolved]
  - Pyrexia [Recovered/Resolved]
  - Oral mucosa erosion [Recovered/Resolved]
  - Erythema [Recovered/Resolved]
  - Lip erosion [Recovered/Resolved]
  - Stomatitis [Recovered/Resolved]

NARRATIVE: CASE EVENT DATE: 20190227
